FAERS Safety Report 8432666-3 (Version None)
Quarter: 2012Q2

REPORT INFORMATION
  Report Type: 
  Country: None (occurrence: None)
  Receive Date: 20120606
  Receipt Date: 20120522
  Transmission Date: 20120825
  Serious: Yes (Life-Threatening, Hospitalization, Other)
  Sender: FDA-Public Use
  Company Number: 2012P1035629

PATIENT
  Age: 69 Year
  Sex: Female

DRUGS (8)
  1. RANITIDINE HCL [Suspect]
     Indication: CHEMOTHERAPY
     Dosage: 50 MG;X1;IV
     Route: 042
     Dates: start: 20120322, end: 20120322
  2. RANITIDINE HCL [Suspect]
     Indication: PREMEDICATION
     Dosage: 50 MG;X1;IV
     Route: 042
     Dates: start: 20120322, end: 20120322
  3. METHYLPREDNISOLONE SODIUM SUCCINATE [Suspect]
     Indication: PREMEDICATION
     Dosage: 120 MG;X1;IV
     Route: 042
     Dates: start: 20120322, end: 20120322
  4. METHYLPREDNISOLONE SODIUM SUCCINATE [Suspect]
     Indication: CHEMOTHERAPY
     Dosage: 120 MG;X1;IV
     Route: 042
     Dates: start: 20120322, end: 20120322
  5. DEXCHLORPHENIRAMINE MALEATE [Suspect]
     Indication: PREMEDICATION
     Dosage: 5 MG;X1;IV
     Route: 042
     Dates: start: 20120322, end: 20120322
  6. DEXCHLORPHENIRAMINE MALEATE [Suspect]
     Indication: CHEMOTHERAPY
     Dosage: 5 MG;X1;IV
     Route: 042
     Dates: start: 20120322, end: 20120322
  7. GRANISETRON HYDROCHLORIDE [Suspect]
     Indication: CHEMOTHERAPY
     Dosage: 3 MG;X1;IV
     Route: 042
     Dates: start: 20120322, end: 20120322
  8. GRANISETRON HYDROCHLORIDE [Suspect]
     Indication: PREMEDICATION
     Dosage: 3 MG;X1;IV
     Route: 042
     Dates: start: 20120322, end: 20120322

REACTIONS (1)
  - ANAPHYLACTIC SHOCK [None]
